FAERS Safety Report 24815063 (Version 4)
Quarter: 2025Q2

REPORT INFORMATION
  Report Type: Spontaneous
  Country: US (occurrence: US)
  Receive Date: 20250107
  Receipt Date: 20250402
  Transmission Date: 20250716
  Serious: Yes (Other)
  Sender: PFIZER
  Company Number: US-PFIZER INC-PV202300195510

PATIENT
  Age: 75 Year
  Sex: Male

DRUGS (2)
  1. BOSULIF [Suspect]
     Active Substance: BOSUTINIB MONOHYDRATE
     Indication: Chronic myeloid leukaemia
     Dosage: TAKE WHOLE WITH WATER AND FOOD
     Route: 048
  2. BOSULIF [Suspect]
     Active Substance: BOSUTINIB MONOHYDRATE
     Dosage: 100 MG (2 TABLETS DAILY), TAKE WHOLE WITH WATER AND FOOD
     Route: 048

REACTIONS (8)
  - Cardiac failure congestive [Not Recovered/Not Resolved]
  - Type 2 diabetes mellitus [Not Recovered/Not Resolved]
  - Osteomyelitis [Not Recovered/Not Resolved]
  - Anaemia [Not Recovered/Not Resolved]
  - Arthropathy [Not Recovered/Not Resolved]
  - Iron deficiency [Not Recovered/Not Resolved]
  - Pleural effusion [Not Recovered/Not Resolved]
  - Vitamin D deficiency [Not Recovered/Not Resolved]
